FAERS Safety Report 17768738 (Version 2)
Quarter: 2020Q2

REPORT INFORMATION
  Report Type: Report from Study
  Country: DE (occurrence: DE)
  Receive Date: 20200512
  Receipt Date: 20200529
  Transmission Date: 20200714
  Serious: No
  Sender: FDA-Public Use
  Company Number: DE-BEH-2020117074

PATIENT
  Age: 65 Year
  Sex: Male
  Weight: 90 kg

DRUGS (13)
  1. HIZENTRA [Suspect]
     Active Substance: HUMAN IMMUNOGLOBULIN G
     Indication: INFECTION
  2. HIZENTRA [Suspect]
     Active Substance: HUMAN IMMUNOGLOBULIN G
     Indication: CHRONIC LYMPHOCYTIC LEUKAEMIA
     Dosage: 21.9 MILLIGRAM/KILOGRAM, QW
     Route: 065
     Dates: start: 20170405, end: 20180123
  3. VALACICLOVIR [Concomitant]
     Active Substance: VALACYCLOVIR HYDROCHLORIDE
  4. AMLODIPINE [Concomitant]
     Active Substance: AMLODIPINE BESYLATE
  5. TORASEMIDE [Concomitant]
     Active Substance: TORSEMIDE
  6. MOXONIDINE [Concomitant]
     Active Substance: MOXONIDINE
  7. VENETOCLAX. [Concomitant]
     Active Substance: VENETOCLAX
  8. METAMIZOLE [Concomitant]
     Active Substance: METAMIZOLE
  9. LISINOPRIL. [Concomitant]
     Active Substance: LISINOPRIL
  10. HIZENTRA [Suspect]
     Active Substance: HUMAN IMMUNOGLOBULIN G
     Indication: HYPOGAMMAGLOBULINAEMIA
  11. COTRIM [Concomitant]
     Active Substance: SULFAMETHOXAZOLE\TRIMETHOPRIM
  12. IMBRUVICA [Concomitant]
     Active Substance: IBRUTINIB
  13. ALLOPURINOL. [Concomitant]
     Active Substance: ALLOPURINOL

REACTIONS (3)
  - Suspected transmission of an infectious agent via product [Fatal]
  - Multiple organ dysfunction syndrome [Fatal]
  - Hepatitis E [Fatal]
